FAERS Safety Report 21970657 (Version 1)
Quarter: 2023Q1

REPORT INFORMATION
  Report Type: Report from Study
  Country: DE (occurrence: DE)
  Receive Date: 20230209
  Receipt Date: 20230209
  Transmission Date: 20230418
  Serious: Yes (Hospitalization, Other)
  Sender: FDA-Public Use
  Company Number: DE-AUROBINDO-AUR-APL-2023-005997

PATIENT
  Age: 17 Year

DRUGS (4)
  1. ARIPIPRAZOLE [Interacting]
     Active Substance: ARIPIPRAZOLE
     Indication: Intellectual disability
     Dosage: UNK
     Route: 065
  2. ARIPIPRAZOLE [Interacting]
     Active Substance: ARIPIPRAZOLE
     Indication: Schizophrenia
  3. CLOZAPINE [Interacting]
     Active Substance: CLOZAPINE
     Indication: Intellectual disability
     Dosage: UNK
     Route: 065
  4. CLOZAPINE [Interacting]
     Active Substance: CLOZAPINE
     Indication: Schizophrenia

REACTIONS (3)
  - Epilepsy [Unknown]
  - Drug interaction [Unknown]
  - Off label use [Unknown]
